FAERS Safety Report 6372305-9 (Version None)
Quarter: 2009Q3

REPORT INFORMATION
  Report Type: 
  Country: None (occurrence: None)
  Receive Date: 20090924
  Receipt Date: 20070605
  Transmission Date: 20100115
  Serious: Yes (Hospitalization, Other)
  Sender: FDA-Public Use
  Company Number: US-ASTRAZENECA-2006UW24014

PATIENT
  Age: 473 Month
  Sex: Female
  Weight: 80.3 kg

DRUGS (8)
  1. SEROQUEL [Suspect]
     Indication: BIPOLAR DISORDER
     Dosage: 200 - 3200 MG, AT BEDTIME, DISPENSED
     Route: 048
     Dates: start: 20010501
  2. NAVANE [Concomitant]
  3. ZYPREXA [Concomitant]
  4. EFFEXOR [Concomitant]
     Dosage: 37.5 - 250 MG
     Route: 048
     Dates: start: 20010520
  5. KLONOPIN [Concomitant]
     Indication: INSOMNIA
     Dosage: 3 - 9 MG, AT NIGHT, AS REQUIRED
     Route: 048
     Dates: start: 20010713
  6. DEPAKOTE [Concomitant]
     Dosage: 250 - 2000 MG, AT NIGHT
     Route: 048
     Dates: start: 20010625
  7. LITHIUM CARBONATE [Concomitant]
     Route: 048
     Dates: start: 20030729
  8. PROTONIX [Concomitant]
     Dates: start: 20030729

REACTIONS (9)
  - CHOLELITHIASIS [None]
  - DIABETES MELLITUS [None]
  - DIABETIC KETOACIDOSIS [None]
  - PANCREATIC PSEUDOCYST [None]
  - PANCREATITIS [None]
  - PANCREATITIS NECROTISING [None]
  - PANCREATITIS RELAPSING [None]
  - PANCREATOGENOUS DIABETES [None]
  - TYPE 1 DIABETES MELLITUS [None]
